FAERS Safety Report 17033675 (Version 1)
Quarter: 2019Q4

REPORT INFORMATION
  Report Type: Report from Study
  Country: US (occurrence: US)
  Receive Date: 20191114
  Receipt Date: 20191114
  Transmission Date: 20200122
  Serious: Yes (Other)
  Sender: FDA-Public Use
  Company Number: US-JNJFOC-20160720576

PATIENT
  Age: 79 Year
  Sex: Male

DRUGS (20)
  1. IMBRUVICA [Suspect]
     Active Substance: IBRUTINIB
     Route: 048
     Dates: start: 20161118, end: 20170131
  2. OMEPRAZOLE. [Concomitant]
     Active Substance: OMEPRAZOLE
  3. CLONAZEPAM. [Concomitant]
     Active Substance: CLONAZEPAM
  4. CENTRUM SILVER                     /02363801/ [Concomitant]
     Active Substance: MINERALS\VITAMINS
  5. MUCINEX DM [Concomitant]
     Active Substance: DEXTROMETHORPHAN HYDROBROMIDE\GUAIFENESIN
  6. PRESERVISION AREDS 2 [Concomitant]
     Active Substance: MINERALS\VITAMINS
  7. CEFTIN [Concomitant]
     Active Substance: CEFUROXIME AXETIL
  8. PRESERVISION AREDS [Concomitant]
     Active Substance: MINERALS\VITAMINS
  9. LIDOCAINE HYDROCHLORIDE. [Concomitant]
     Active Substance: LIDOCAINE HYDROCHLORIDE
  10. ESCITALOPRAM OXALATE. [Concomitant]
     Active Substance: ESCITALOPRAM OXALATE
  11. GALANTAMINE HYDROBROMIDE. [Concomitant]
     Active Substance: GALANTAMINE HYDROBROMIDE
  12. IMBRUVICA [Suspect]
     Active Substance: IBRUTINIB
     Indication: NON-HODGKIN^S LYMPHOMA
     Route: 048
     Dates: start: 20160714
  13. IMBRUVICA [Suspect]
     Active Substance: IBRUTINIB
     Route: 065
  14. METOPROLOL. [Concomitant]
     Active Substance: METOPROLOL
  15. VENTOLIN [Concomitant]
     Active Substance: ALBUTEROL SULFATE
  16. IMBRUVICA [Suspect]
     Active Substance: IBRUTINIB
     Route: 048
     Dates: start: 20170201, end: 20180313
  17. IMBRUVICA [Suspect]
     Active Substance: IBRUTINIB
     Route: 048
  18. PRAVACHOL [Concomitant]
     Active Substance: PRAVASTATIN SODIUM
  19. BENZONATATE. [Concomitant]
     Active Substance: BENZONATATE
  20. CARAFATE [Concomitant]
     Active Substance: SUCRALFATE

REACTIONS (13)
  - Nasopharyngitis [Unknown]
  - Cough [Recovered/Resolved]
  - Dizziness postural [Unknown]
  - Endoscopy [Unknown]
  - Arthralgia [Recovering/Resolving]
  - Productive cough [Recovered/Resolved]
  - Skin cancer [Unknown]
  - Dry mouth [Unknown]
  - Blood blister [Unknown]
  - Pain in extremity [Unknown]
  - Dyspnoea [Recovered/Resolved]
  - Blister [Unknown]
  - Headache [Unknown]

NARRATIVE: CASE EVENT DATE: 2016
